FAERS Safety Report 23538224 (Version 2)
Quarter: 2024Q1

REPORT INFORMATION
  Report Type: Spontaneous
  Country: US (occurrence: US)
  Receive Date: 20240219
  Receipt Date: 20240306
  Transmission Date: 20240410
  Serious: No
  Sender: FDA-Public Use
  Company Number: US-AMGEN-USASP2024032333

PATIENT
  Age: 70 Year
  Sex: Female

DRUGS (5)
  1. REPATHA [Suspect]
     Active Substance: EVOLOCUMAB
     Indication: High density lipoprotein abnormal
     Dosage: 140 MILLIGRAM, Q2WK
     Route: 065
     Dates: start: 202212
  2. REPATHA [Suspect]
     Active Substance: EVOLOCUMAB
     Indication: Low density lipoprotein abnormal
  3. REPATHA [Suspect]
     Active Substance: EVOLOCUMAB
     Indication: Blood cholesterol abnormal
  4. REPATHA [Suspect]
     Active Substance: EVOLOCUMAB
     Indication: Blood triglycerides abnormal
  5. REPATHA [Suspect]
     Active Substance: EVOLOCUMAB
     Indication: Cardiac disorder

REACTIONS (2)
  - Drug dose omission by device [Unknown]
  - Device difficult to use [Unknown]

NARRATIVE: CASE EVENT DATE: 20240214
